FAERS Safety Report 9915304 (Version 1)
Quarter: 2014Q1

REPORT INFORMATION
  Report Type: Report from Study
  Country: US (occurrence: US)
  Receive Date: 20140221
  Receipt Date: 20140221
  Transmission Date: 20141002
  Serious: Yes (Death, Hospitalization)
  Sender: FDA-Public Use
  Company Number: US-ROCHE-1353743

PATIENT
  Sex: Female
  Weight: 70 kg

DRUGS (11)
  1. XELODA [Suspect]
     Indication: RECTAL CANCER METASTATIC
     Dosage: 1000 MG IN AM AND 1500 MG IN PM- 2 WKS ON/1 WK OFF
     Route: 048
  2. XELODA [Suspect]
     Indication: RECTAL CANCER
  3. AVASTIN [Suspect]
     Indication: RECTAL CANCER METASTATIC
     Route: 042
     Dates: start: 20120516
  4. AVASTIN [Suspect]
     Indication: RECTAL CANCER
  5. ONDANSETRON [Concomitant]
     Route: 042
  6. LORAZEPAM [Concomitant]
     Route: 048
  7. PROCHLORPERAZINE [Concomitant]
     Route: 048
  8. DILAUDID [Concomitant]
     Route: 048
  9. FENTANYL [Concomitant]
     Route: 062
  10. MIRALAX [Concomitant]
  11. MEGACE [Concomitant]
     Route: 065

REACTIONS (11)
  - Death [Fatal]
  - Rectal haemorrhage [Recovered/Resolved with Sequelae]
  - Proctalgia [Recovered/Resolved with Sequelae]
  - Dyspnoea [Unknown]
  - Asthenia [Unknown]
  - Decreased appetite [Unknown]
  - Nausea [Unknown]
  - Vomiting [Unknown]
  - Depression [Unknown]
  - Fatigue [Unknown]
  - Skin exfoliation [Unknown]
